FAERS Safety Report 11320084 (Version 1)
Quarter: 2015Q3

REPORT INFORMATION
  Report Type: Spontaneous
  Country: CH (occurrence: CH)
  Receive Date: 20150729
  Receipt Date: 20150729
  Transmission Date: 20151125
  Serious: Yes (Hospitalization)
  Sender: FDA-Public Use
  Company Number: PHHY2015CH088977

PATIENT
  Age: 46 Year
  Sex: Female
  Weight: 88 kg

DRUGS (3)
  1. RITALIN [Suspect]
     Active Substance: METHYLPHENIDATE HYDROCHLORIDE
     Indication: FEAR
     Dosage: UNK
     Route: 065
     Dates: start: 20140624
  2. BEXIN [Suspect]
     Active Substance: DEXTROMETHORPHAN HYDROBROMIDE
     Indication: PRODUCT USED FOR UNKNOWN INDICATION
     Dosage: 4 DF, QD
     Route: 065
     Dates: start: 20140624
  3. QUETIAPINE [Suspect]
     Active Substance: QUETIAPINE
     Indication: FEAR
     Dosage: UNK
     Route: 065
     Dates: start: 20140624

REACTIONS (5)
  - Hyponatraemia [Recovering/Resolving]
  - Overdose [Unknown]
  - Confusional state [Unknown]
  - Somnolence [Unknown]
  - Blood pressure increased [Unknown]

NARRATIVE: CASE EVENT DATE: 20140624
